FAERS Safety Report 15631333 (Version 1)
Quarter: 2018Q4

REPORT INFORMATION
  Report Type: Spontaneous
  Country: US (occurrence: US)
  Receive Date: 20181112
  Receipt Date: 20181112
  Transmission Date: 20190205
  Serious: No
  Sender: FDA-Public Use
  Company Number: None

PATIENT
  Sex: Female

DRUGS (1)
  1. CAPECITABINE 500MG ROXANE [Suspect]
     Active Substance: CAPECITABINE
     Indication: CHOLANGIOCARCINOMA
     Dosage: 2000MG/500MG SEE EVENT PO
     Route: 048
     Dates: start: 20180809

REACTIONS (12)
  - Erythema [None]
  - Asthenia [None]
  - Cognitive disorder [None]
  - Dysgeusia [None]
  - Tenderness [None]
  - Skin exfoliation [None]
  - Eating disorder [None]
  - Catatonia [None]
  - Chills [None]
  - Diarrhoea [None]
  - Fatigue [None]
  - Stomatitis [None]
